FAERS Safety Report 4343804-6 (Version None)
Quarter: 2004Q2

REPORT INFORMATION
  Report Type: 
  Country: None (occurrence: None)
  Receive Date: 20040419
  Receipt Date: 20040406
  Transmission Date: 20050107
  Serious: Yes (Hospitalization)
  Sender: FDA-Public Use
  Company Number: US-JNJFOC-20040401078

PATIENT
  Age: 70 Year
  Sex: Male

DRUGS (11)
  1. INFLIXIMAB (INFLIXIMAB, RECOMBINANT) LYOPHILIZED POWDER [Suspect]
     Indication: RHEUMATOID ARTHRITIS
     Dosage: 600 MG, 1 IN 8 WEEK, INTRAVENOUS
     Route: 042
     Dates: start: 20010807
  2. ZANTAC [Concomitant]
  3. ZESTRIL [Concomitant]
  4. FLOMAX [Concomitant]
  5. LIPITOR [Concomitant]
  6. ASPIRIN [Concomitant]
  7. TOPROL-XL [Concomitant]
  8. METHOTREXATE [Concomitant]
  9. PREDNISONE [Concomitant]
  10. FOSAMAX (ALENDRONATE  SOLDIUM) [Concomitant]
  11. CALTRATE (CALCIUM CARBONATE) [Concomitant]

REACTIONS (8)
  - BLOOD PRESSURE DECREASED [None]
  - GASTRITIS [None]
  - GASTROOESOPHAGEAL REFLUX DISEASE [None]
  - HAEMATEMESIS [None]
  - NAUSEA [None]
  - OESOPHAGITIS [None]
  - SYNCOPE [None]
  - UPPER GASTROINTESTINAL HAEMORRHAGE [None]
